FAERS Safety Report 7263230-X (Version None)
Quarter: 2011Q1

REPORT INFORMATION
  Report Type: 
  Country: None (occurrence: None)
  Receive Date: 20110130
  Receipt Date: 20101014
  Transmission Date: 20110831
  Serious: No
  Sender: FDA-Public Use
  Company Number: US-ABBOTT-10P-163-0678425-00

PATIENT
  Age: 35 Year
  Sex: Female

DRUGS (8)
  1. WELLBUTRIN SR [Concomitant]
     Indication: DEPRESSION
  2. HUMIRA [Suspect]
     Indication: CROHN'S DISEASE
     Dates: start: 20100801
  3. LORAZEPAM [Concomitant]
     Indication: ANXIETY
  4. ALBUTEROL [Concomitant]
     Indication: PRODUCT USED FOR UNKNOWN INDICATION
  5. WELLBUTRIN SR [Concomitant]
     Indication: ANXIETY
  6. TRAMADOL HCL [Concomitant]
     Indication: PAIN
     Dosage: EVERY 4 TO 6 HOURS AS NEEDED
  7. CLARINEX [Concomitant]
     Indication: HYPERSENSITIVITY
     Route: 048
  8. OMEPRAZOLE [Concomitant]
     Indication: ULCER

REACTIONS (2)
  - INJECTION SITE PAIN [None]
  - RHINITIS [None]
